FAERS Safety Report 5313736-5 (Version None)
Quarter: 2007Q2

REPORT INFORMATION
  Report Type: 
  Country: None (occurrence: None)
  Receive Date: 20070425
  Receipt Date: 20070423
  Transmission Date: 20071010
  Serious: Yes (Death)
  Sender: FDA-Public Use
  Company Number: TCI2007A02009

PATIENT
  Age: 81 Year
  Sex: Male

DRUGS (2)
  1. LEUPROLIDE ACETATE [Suspect]
     Indication: PROSTATE CANCER STAGE IV
     Dosage: 11.25 MG (11.25 MG, 1 IN 12 WK, SUBCUTANEOUS
     Route: 058
     Dates: start: 20060414
  2. CASODEX (BICALUTAMID) (TABLETS) [Concomitant]

REACTIONS (2)
  - CEREBRAL INFARCTION [None]
  - PROSTATIC SPECIFIC ANTIGEN INCREASED [None]
